FAERS Safety Report 6153462-6 (Version None)
Quarter: 2009Q2

REPORT INFORMATION
  Report Type: 
  Country: None (occurrence: None)
  Receive Date: 20090409
  Receipt Date: 20090409
  Transmission Date: 20091009
  Serious: Yes (Other)
  Sender: FDA-Public Use
  Company Number: None

PATIENT
  Age: 77 Year
  Sex: Female
  Weight: 51.7101 kg

DRUGS (3)
  1. ALENDRONATE SODIUM [Suspect]
     Indication: OSTEOPOROSIS
     Dosage: ONE TABLET ONCE A WEEK
     Dates: start: 20090221
  2. ALENDRONATE SODIUM [Suspect]
     Indication: OSTEOPOROSIS
     Dosage: ONE TABLET ONCE A WEEK
     Dates: start: 20090228
  3. ALENDRONATE SODIUM [Suspect]
     Indication: OSTEOPOROSIS
     Dosage: ONE TABLET ONCE A WEEK
     Dates: start: 20090307

REACTIONS (4)
  - CONSTIPATION [None]
  - GASTRIC DISORDER [None]
  - OEDEMA PERIPHERAL [None]
  - SWELLING [None]
